FAERS Safety Report 16411131 (Version 1)
Quarter: 2019Q2

REPORT INFORMATION
  Report Type: Spontaneous
  Country: SE (occurrence: SE)
  Receive Date: 20190610
  Receipt Date: 20190610
  Transmission Date: 20190711
  Serious: Yes (Other)
  Sender: FDA-Public Use
  Company Number: SE-AMREGENT-20191138

PATIENT
  Age: 62 Year
  Sex: Female

DRUGS (1)
  1. VENOFER [Suspect]
     Active Substance: IRON SUCROSE
     Dosage: 20MG/ML 100 MG (100 MG)
     Route: 042
     Dates: start: 20190513, end: 20190513

REACTIONS (4)
  - Pyrexia [Unknown]
  - Headache [Unknown]
  - Chills [Unknown]
  - Nausea [Unknown]

NARRATIVE: CASE EVENT DATE: 20190514
